FAERS Safety Report 9679013 (Version 2)
Quarter: 2013Q4

REPORT INFORMATION
  Report Type: Spontaneous
  Country: US (occurrence: US)
  Receive Date: 20131108
  Receipt Date: 20131108
  Transmission Date: 20140711
  Serious: Yes (Hospitalization)
  Sender: FDA-Public Use
  Company Number: US-B.I. PHARMACEUTICALS,INC./RIDGEFIELD-2013-BI-14108BP

PATIENT
  Age: 80 Year
  Sex: Female
  Weight: 61.23 kg

DRUGS (7)
  1. PRADAXA [Suspect]
     Indication: ANTICOAGULANT THERAPY
     Dosage: 300 MG
     Dates: start: 20110908, end: 20120117
  2. PRADAXA [Suspect]
     Indication: ATRIAL FIBRILLATION
  3. ATENOLOL [Concomitant]
     Dosage: 100 MG
  4. LEVOXYL [Concomitant]
     Dosage: 88 MCG
  5. FLECAINIDE [Concomitant]
     Dosage: 100 MG
  6. OMEPRAZOLE [Concomitant]
     Dosage: 20 MG
  7. HYDROCODONE [Concomitant]

REACTIONS (2)
  - Lower gastrointestinal haemorrhage [Unknown]
  - Haemorrhagic anaemia [Unknown]
